FAERS Safety Report 5168558-5 (Version None)
Quarter: 2006Q4

REPORT INFORMATION
  Report Type: 
  Country: None (occurrence: None)
  Receive Date: 20061208
  Receipt Date: 20061102
  Transmission Date: 20070319
  Serious: Yes (Death)
  Sender: FDA-Public Use
  Company Number: NO-MERCK-0611NOR00004

PATIENT
  Age: 62 Year
  Sex: Male

DRUGS (11)
  1. HYZAAR [Suspect]
     Indication: CARDIAC FAILURE
     Route: 048
  2. SPIRIX [Suspect]
     Indication: CARDIAC FAILURE
     Route: 048
     Dates: start: 19990801
  3. MAREVAN [Concomitant]
     Route: 065
  4. ALBYL-E [Concomitant]
     Route: 048
  5. ALLOPURINOL [Concomitant]
     Route: 048
  6. DIURAL [Concomitant]
     Route: 048
     Dates: start: 19990801
  7. LIPITOR [Concomitant]
     Route: 065
  8. KREDEX [Concomitant]
     Route: 048
  9. COZAAR [Concomitant]
     Route: 065
     Dates: start: 19990801
  10. NORVASC [Concomitant]
     Route: 065
     Dates: start: 19990101
  11. MONOKET [Concomitant]
     Route: 065
     Dates: start: 19990101

REACTIONS (2)
  - CARDIAC FAILURE [None]
  - RENAL FAILURE [None]
